FAERS Safety Report 6962981-1 (Version None)
Quarter: 2010Q3

REPORT INFORMATION
  Report Type: 
  Country: None (occurrence: None)
  Receive Date: 20100902
  Receipt Date: 20100823
  Transmission Date: 20110219
  Serious: Yes (Other)
  Sender: FDA-Public Use
  Company Number: IT-ROCHE-723722

PATIENT

DRUGS (5)
  1. BEVACIZUMAB [Suspect]
     Indication: METASTATIC RENAL CELL CARCINOMA
     Dosage: FORM: INFUSION
     Route: 042
  2. INTERFERON ALFA-2A [Suspect]
     Indication: METASTATIC RENAL CELL CARCINOMA
     Dosage: ON DAY 10, 12, 17 AND 19
     Route: 058
  3. PROLEUKIN [Suspect]
     Indication: METASTATIC RENAL CELL CARCINOMA
     Dosage: DOSE: 1 MIU/M2
     Route: 058
  4. GEMZAR [Suspect]
     Indication: METASTATIC RENAL CELL CARCINOMA
     Dosage: FREQUENCY: ON DAY1 AND 8 EVERY 28 DAYS
     Route: 042
  5. FLUOROURACIL [Suspect]
     Indication: METASTATIC RENAL CELL CARCINOMA
     Dosage: FREQUENCY: ON DAY1 AND 8 EVERY 28 DAYS
     Route: 040

REACTIONS (24)
  - ANAEMIA [None]
  - ASTHENIA [None]
  - CARDIOTOXICITY [None]
  - DECREASED APPETITE [None]
  - DEPRESSION [None]
  - FEBRILE NEUTROPENIA [None]
  - HAEMOPTYSIS [None]
  - HYPERCALCAEMIA [None]
  - HYPERTENSION [None]
  - HYPERTRANSAMINASAEMIA [None]
  - HYPOALBUMINAEMIA [None]
  - HYPOTENSION [None]
  - LEUKOPENIA [None]
  - MUSCULOSKELETAL PAIN [None]
  - NEUROTOXICITY [None]
  - NEUTROPENIA [None]
  - PAIN [None]
  - PATHOLOGICAL FRACTURE [None]
  - PROTEINURIA [None]
  - PRURITUS [None]
  - PYREXIA [None]
  - RENAL FAILURE [None]
  - THROMBOCYTOPENIA [None]
  - VOMITING [None]
